FAERS Safety Report 9435055 (Version 1)
Quarter: 2013Q3

REPORT INFORMATION
  Report Type: Spontaneous
  Country: US (occurrence: US)
  Receive Date: 20130801
  Receipt Date: 20130801
  Transmission Date: 20140515
  Serious: No
  Sender: FDA-Public Use
  Company Number: US-PFIZER INC-2013220990

PATIENT
  Age: 53 Year
  Sex: Female

DRUGS (13)
  1. XELJANZ [Suspect]
     Indication: RHEUMATOID ARTHRITIS
     Dosage: 5 MG, 2X/DAY
     Route: 048
     Dates: start: 201306, end: 201307
  2. PREDNISON [Concomitant]
     Dosage: 5 MG, UNK
  3. ACETYLSALICYLIC ACID ^BAYER^ [Concomitant]
     Dosage: 81 MG, UNK
  4. NORVASC [Concomitant]
     Dosage: 10 MG, UNK
  5. ZYRTEC [Concomitant]
     Dosage: 10 MG, UNK
  6. LOSARTAN [Concomitant]
     Dosage: 10 MG, UNK
  7. FOLIC ACID [Concomitant]
     Dosage: 5 MG, UNK
  8. METFORMIN [Concomitant]
     Dosage: UNK
  9. IBUPROFEN [Concomitant]
     Dosage: 800 MG, UNK
  10. LEFLUNOMIDE [Concomitant]
     Dosage: 20 MG, UNK
  11. CALCIUM WITH VITAMIN D [Concomitant]
     Dosage: UNK
  12. VITAMIN B12 [Concomitant]
     Dosage: 5000 MG, UNK
  13. BIOTIN [Concomitant]
     Dosage: 1000 MG, UNK

REACTIONS (6)
  - Oropharyngeal pain [Unknown]
  - Rhinorrhoea [Unknown]
  - Chest pain [Unknown]
  - Pollakiuria [Unknown]
  - Dysuria [Unknown]
  - Headache [Recovered/Resolved]
